FAERS Safety Report 13872244 (Version 2)
Quarter: 2017Q4

REPORT INFORMATION
  Report Type: Spontaneous
  Country: MX (occurrence: MX)
  Receive Date: 20170816
  Receipt Date: 20171120
  Transmission Date: 20180320
  Serious: Yes (Other)
  Sender: FDA-Public Use
  Company Number: MX-APOTEX-2017AP016517

PATIENT
  Age: 66 Year
  Sex: Female
  Weight: 86.7 kg

DRUGS (6)
  1. APOCORA (ENALAPRIL MALEATE) [Suspect]
     Active Substance: ENALAPRIL MALEATE
     Indication: HYPERTENSION
     Dosage: 5 MG, BID, 1/4 TABLET OF 10 MG
     Route: 048
     Dates: start: 201703, end: 201707
  2. CLONAZEPAM. [Concomitant]
     Active Substance: CLONAZEPAM
     Indication: ANXIETY
     Dosage: 1 DROP IN THE MORNING AND 2 DROPS AT NIGHT
     Route: 048
     Dates: start: 20170626
  3. CHLORTHALIDONE. [Concomitant]
     Active Substance: CHLORTHALIDONE
     Indication: HYPERTENSION
     Dosage: ONE FOURTH TABLET
     Route: 048
  4. FLUOXETINE [Concomitant]
     Active Substance: FLUOXETINE HYDROCHLORIDE
     Indication: HALLUCINATION
     Dosage: 10 MG, HALF  TABLET OF 20 MG
     Route: 048
     Dates: start: 20170617
  5. APOCORA (ENALAPRIL MALEATE) [Suspect]
     Active Substance: ENALAPRIL MALEATE
     Dosage: UNK
     Route: 065
     Dates: start: 20171101
  6. APOCORA (ENALAPRIL MALEATE) [Suspect]
     Active Substance: ENALAPRIL MALEATE
     Dosage: 5 MG, BID, HALF TABLET OF 10 MG
     Route: 048
     Dates: start: 201707

REACTIONS (23)
  - Hallucination [Unknown]
  - Cough [Unknown]
  - Bradycardia [Unknown]
  - Tachycardia [Recovered/Resolved]
  - Blood pressure inadequately controlled [Unknown]
  - Product taste abnormal [Unknown]
  - Condition aggravated [Unknown]
  - Polymenorrhoea [Unknown]
  - Anxiety [None]
  - Product colour issue [Unknown]
  - Wrong technique in product usage process [None]
  - Disorientation [Unknown]
  - Irregular breathing [Unknown]
  - Asthenia [Unknown]
  - Feeling hot [None]
  - Blood pressure abnormal [Unknown]
  - Urinary tract infection [Unknown]
  - Head discomfort [Recovered/Resolved]
  - Off label use [Unknown]
  - Emotional distress [Unknown]
  - Dizziness [Unknown]
  - Menorrhagia [Unknown]
  - Dyspnoea [Unknown]

NARRATIVE: CASE EVENT DATE: 201703
